FAERS Safety Report 16398991 (Version 1)
Quarter: 2019Q2

REPORT INFORMATION
  Report Type: Spontaneous
  Country: RU (occurrence: RU)
  Receive Date: 20190606
  Receipt Date: 20190606
  Transmission Date: 20190711
  Serious: Yes (Death, Hospitalization)
  Sender: FDA-Public Use
  Company Number: RU-ACTELION-A-CH2019-191187

PATIENT
  Age: 45 Year
  Sex: Female

DRUGS (3)
  1. AMLODIPIN [Concomitant]
     Active Substance: AMLODIPINE BESYLATE
     Indication: PULMONARY ARTERIAL HYPERTENSION
     Dosage: 10 MG, QD
     Route: 048
     Dates: start: 2013, end: 20190515
  2. OPSUMIT [Suspect]
     Active Substance: MACITENTAN
     Indication: PULMONARY ARTERIAL HYPERTENSION
     Dosage: 10 MG, QD
     Route: 048
     Dates: start: 201902, end: 20190515
  3. TROMBO ASS [Concomitant]
     Active Substance: ASPIRIN
     Indication: PULMONARY ARTERIAL HYPERTENSION
     Dosage: 100 MG, QD
     Route: 048
     Dates: start: 2018, end: 20190515

REACTIONS (5)
  - Pulmonary arterial hypertension [Fatal]
  - Disease progression [Fatal]
  - Viral infection [Recovered/Resolved]
  - Dyspnoea [Fatal]
  - Cardiac failure [Fatal]

NARRATIVE: CASE EVENT DATE: 201902
